FAERS Safety Report 10196947 (Version 1)
Quarter: 2014Q2

REPORT INFORMATION
  Report Type: Spontaneous
  Country: CN (occurrence: CN)
  Receive Date: 20140527
  Receipt Date: 20140527
  Transmission Date: 20141212
  Serious: Yes (Other)
  Sender: FDA-Public Use
  Company Number: CN-ASTRAZENECA-2014SE35507

PATIENT
  Age: 28423 Day
  Sex: Female
  Weight: 42 kg

DRUGS (5)
  1. BUDESONIDE [Suspect]
     Indication: CHRONIC OBSTRUCTIVE PULMONARY DISEASE
     Route: 055
     Dates: start: 20130324, end: 20130325
  2. TERBUTALINE SULPHATE [Suspect]
     Indication: CHRONIC OBSTRUCTIVE PULMONARY DISEASE
     Route: 051
     Dates: start: 20130324, end: 20130325
  3. TERBUTALINE SULPHATE [Suspect]
     Indication: CHRONIC OBSTRUCTIVE PULMONARY DISEASE
     Route: 055
     Dates: start: 20130324, end: 20130325
  4. DOXOFYLLINE INJECTION [Suspect]
     Indication: CHRONIC OBSTRUCTIVE PULMONARY DISEASE
     Route: 042
     Dates: start: 20130324, end: 20130325
  5. IPRATROPIUM BROMIDE [Suspect]
     Indication: CHRONIC OBSTRUCTIVE PULMONARY DISEASE
     Route: 065
     Dates: start: 20130324, end: 20130325

REACTIONS (3)
  - Tremor [Recovering/Resolving]
  - Muscle twitching [Recovering/Resolving]
  - Head titubation [Unknown]
